FAERS Safety Report 6836127-4 (Version None)
Quarter: 2010Q3

REPORT INFORMATION
  Report Type: 
  Country: None (occurrence: None)
  Receive Date: 20100713
  Receipt Date: 20100701
  Transmission Date: 20110219
  Serious: Yes (Hospitalization)
  Sender: FDA-Public Use
  Company Number: IL-ROCHE-713662

PATIENT
  Age: 72 Year
  Sex: Female

DRUGS (2)
  1. AVASTIN [Suspect]
     Dosage: ADMINISTERED EVERY FOUR TO SIX WEEKS
     Route: 031
  2. LOMEFLOXACIN [Concomitant]
     Dosage: DOSING AMOUNT: 0.3%

REACTIONS (1)
  - CORNEAL INFILTRATES [None]
